FAERS Safety Report 5144405-2 (Version None)
Quarter: 2006Q4

REPORT INFORMATION
  Report Type: 
  Country: None (occurrence: None)
  Receive Date: 20061030
  Receipt Date: 20061004
  Transmission Date: 20070319
  Serious: Yes (Hospitalization, Other)
  Sender: FDA-Public Use
  Company Number: 2005169652

PATIENT
  Age: 47 Year
  Sex: Male
  Weight: 112.9457 kg

DRUGS (5)
  1. CELEBREX [Suspect]
     Dates: start: 20020709, end: 20021116
  2. VIOXX [Suspect]
     Indication: BACK PAIN
     Dosage: 75 MG (25 MG, 3 IN 1 D)
     Dates: start: 20020621, end: 20021116
  3. VICODIN [Concomitant]
  4. FLEXERIL [Concomitant]
  5. ULTRAM [Concomitant]

REACTIONS (4)
  - BLOOD CHOLESTEROL INCREASED [None]
  - HYPERTENSION [None]
  - LOW DENSITY LIPOPROTEIN INCREASED [None]
  - MYOCARDIAL INFARCTION [None]
